FAERS Safety Report 10145774 (Version 1)
Quarter: 2014Q2

REPORT INFORMATION
  Report Type: Spontaneous
  Country: US (occurrence: US)
  Receive Date: 20140501
  Receipt Date: 20140501
  Transmission Date: 20141212
  Serious: No
  Sender: FDA-Public Use
  Company Number: US-ABBVIE-13P-163-1118721-00

PATIENT
  Age: 68 Year
  Sex: Female
  Weight: 64.92 kg

DRUGS (13)
  1. CREON [Suspect]
     Indication: PANCREATIC DISORDER
     Dosage: 4-8 PER DAY
     Dates: end: 20130708
  2. ARMOUR THYROID [Concomitant]
     Indication: THYROID DISORDER
  3. LIPITOR [Concomitant]
     Indication: BLOOD CHOLESTEROL
  4. LOTRIL [Concomitant]
     Indication: BLOOD PRESSURE
  5. METOPROLOL [Concomitant]
     Indication: BLOOD PRESSURE
  6. COUMADIN [Concomitant]
     Indication: THROMBOSIS
  7. VITAMIN D2 [Concomitant]
     Indication: PRODUCT USED FOR UNKNOWN INDICATION
  8. NEXIUM [Concomitant]
     Indication: GASTRIC DISORDER
  9. SUBSTITUTE FOR ACIDOPHILUS [Concomitant]
     Indication: GASTRIC DISORDER
  10. VENTOLIN [Concomitant]
     Indication: CHRONIC OBSTRUCTIVE PULMONARY DISEASE
     Route: 055
  11. VENTOLIN [Concomitant]
     Indication: EMPHYSEMA
  12. SPIRIVA [Concomitant]
     Indication: CHRONIC OBSTRUCTIVE PULMONARY DISEASE
     Route: 055
  13. SPIRIVA [Concomitant]
     Indication: EMPHYSEMA

REACTIONS (6)
  - Ileus [Unknown]
  - Dyspepsia [Not Recovered/Not Resolved]
  - Nausea [Not Recovered/Not Resolved]
  - Diarrhoea [Not Recovered/Not Resolved]
  - Diarrhoea [Unknown]
  - Dyspepsia [Unknown]
